FAERS Safety Report 12271035 (Version 2)
Quarter: 2016Q2

REPORT INFORMATION
  Report Type: Spontaneous
  Country: US (occurrence: US)
  Receive Date: 20160415
  Receipt Date: 20160420
  Transmission Date: 20160815
  Serious: Yes (Death, Hospitalization, Disabling, Other)
  Sender: FDA-Public Use
  Company Number: US-009507513-1604USA009610

PATIENT
  Sex: Male
  Weight: 124.72 kg

DRUGS (1)
  1. JANUVIA [Suspect]
     Active Substance: SITAGLIPTIN PHOSPHATE
     Indication: TYPE 2 DIABETES MELLITUS
     Dosage: 100 MG, QD
     Route: 048
     Dates: start: 20080512, end: 20080805

REACTIONS (27)
  - Depression [Unknown]
  - Metastases to spleen [Unknown]
  - Hypertension [Unknown]
  - Tonsillectomy [Unknown]
  - Glaucoma [Unknown]
  - Prostatomegaly [Unknown]
  - Vena cava embolism [Recovering/Resolving]
  - Anaemia [Unknown]
  - Pancreatic carcinoma metastatic [Fatal]
  - Deep vein thrombosis [Recovering/Resolving]
  - Cellulitis [Recovered/Resolved]
  - Deep vein thrombosis [Unknown]
  - Oedema peripheral [Recovered/Resolved]
  - Diarrhoea [Unknown]
  - Hyperventilation [Unknown]
  - Osteoarthritis [Unknown]
  - Trousseau^s syndrome [Unknown]
  - Gastrointestinal haemorrhage [Unknown]
  - Febrile neutropenia [Unknown]
  - Metastases to lung [Unknown]
  - Sleep apnoea syndrome [Unknown]
  - Angioplasty [Unknown]
  - Venous stent insertion [Unknown]
  - Back pain [Unknown]
  - Metastases to liver [Unknown]
  - Intervertebral disc degeneration [Unknown]
  - Thrombocytopenia [Unknown]

NARRATIVE: CASE EVENT DATE: 201104
